FAERS Safety Report 21921918 (Version 3)
Quarter: 2023Q1

REPORT INFORMATION
  Report Type: Spontaneous
  Country: US (occurrence: None)
  Receive Date: 20230127
  Receipt Date: 20230330
  Transmission Date: 20230418
  Serious: No
  Sender: FDA-Public Use
  Company Number: 2023A020254

PATIENT
  Sex: Male

DRUGS (1)
  1. BYDUREON BCISE [Suspect]
     Active Substance: EXENATIDE
     Indication: Diabetes mellitus
     Route: 058

REACTIONS (6)
  - Injection site pain [Not Recovered/Not Resolved]
  - Device delivery system issue [Recovered/Resolved]
  - Incorrect dose administered by product [Recovered/Resolved]
  - Wrong technique in product usage process [Recovered/Resolved]
  - Device leakage [Unknown]
  - Device delivery system issue [Unknown]
